FAERS Safety Report 7698960-9 (Version None)
Quarter: 2011Q3

REPORT INFORMATION
  Report Type: 
  Country: None (occurrence: None)
  Receive Date: 20110819
  Receipt Date: 20110812
  Transmission Date: 20111222
  Serious: Yes (Death)
  Sender: FDA-Public Use
  Company Number: JP-CEPHALON-2011004266

PATIENT
  Age: 85 Year
  Sex: Male

DRUGS (2)
  1. BENDAMUSTINE HCL [Suspect]
     Indication: NON-HODGKIN'S LYMPHOMA
     Route: 042
     Dates: start: 20110117, end: 20110118
  2. BENDAMUSTINE HCL [Suspect]
     Route: 042
     Dates: start: 20110205, end: 20110206

REACTIONS (1)
  - ORGANISING PNEUMONIA [None]
